FAERS Safety Report 18149798 (Version 1)
Quarter: 2020Q3

REPORT INFORMATION
  Report Type: Spontaneous
  Country: US (occurrence: US)
  Receive Date: 20200813
  Receipt Date: 20200813
  Transmission Date: 20201103
  Serious: Yes (Hospitalization)
  Sender: FDA-Public Use
  Company Number: None

PATIENT
  Age: 43 Year
  Sex: Female
  Weight: 62.1 kg

DRUGS (18)
  1. PREGABLIN [Concomitant]
     Active Substance: PREGABALIN
  2. FISH OIL [Concomitant]
     Active Substance: FISH OIL
  3. PRISTIQ EXTENDED?RELEASE [Concomitant]
     Active Substance: DESVENLAFAXINE SUCCINATE
  4. CLARITIN?D NOS [Concomitant]
     Active Substance: LORATADINE\PSEUDOEPHEDRINE SULFATE
  5. VITAMIN C [Concomitant]
     Active Substance: ASCORBIC ACID
  6. PROBIOTIC [Concomitant]
     Active Substance: PROBIOTICS NOS
  7. TUMERIC [Concomitant]
     Active Substance: HERBALS\TURMERIC
  8. BUDESONIDE XIIDRA [Concomitant]
  9. FOLIC ACID. [Concomitant]
     Active Substance: FOLIC ACID
  10. VIT D [Concomitant]
     Active Substance: VITAMIN D NOS
  11. TRAZODONE [Concomitant]
     Active Substance: TRAZODONE HYDROCHLORIDE
  12. PEPCID [Concomitant]
     Active Substance: FAMOTIDINE
  13. PLAQUENIL [Concomitant]
     Active Substance: HYDROXYCHLOROQUINE SULFATE
  14. NEXIUM [Concomitant]
     Active Substance: ESOMEPRAZOLE MAGNESIUM
  15. FLONASE [Concomitant]
     Active Substance: FLUTICASONE PROPIONATE
  16. LAMICTAL [Concomitant]
     Active Substance: LAMOTRIGINE
  17. XYZAL [Concomitant]
     Active Substance: LEVOCETIRIZINE DIHYDROCHLORIDE
  18. DESMOPRESSIN ACETATE10 MCG PER 0.1ML DDAVP [Suspect]
     Active Substance: DESMOPRESSIN ACETATE
     Indication: VON WILLEBRAND^S DISEASE
     Dosage: ?          QUANTITY:1 SPRAY(S);OTHER FREQUENCY:12 AND 2 HRS PREOP;OTHER ROUTE:TRANASALLY?
     Dates: start: 20200722, end: 20200810

REACTIONS (8)
  - Nausea [None]
  - Headache [None]
  - Lethargy [None]
  - Confusional state [None]
  - Paraesthesia [None]
  - Hypoaesthesia [None]
  - Muscle spasms [None]
  - Limb discomfort [None]

NARRATIVE: CASE EVENT DATE: 20200811
